FAERS Safety Report 13341788 (Version 1)
Quarter: 2017Q1

REPORT INFORMATION
  Report Type: Spontaneous
  Country: US (occurrence: US)
  Receive Date: 20170316
  Receipt Date: 20170316
  Transmission Date: 20170428
  Serious: No
  Sender: FDA-Public Use
  Company Number: US-ROCHE-1513450

PATIENT
  Sex: Female

DRUGS (3)
  1. IBUPROFEN. [Concomitant]
     Active Substance: IBUPROFEN
     Indication: ARTHRITIS
     Route: 065
  2. XENICAL [Suspect]
     Active Substance: ORLISTAT
     Dosage: WITH MEALS
     Route: 065
     Dates: start: 20141218
  3. XENICAL [Suspect]
     Active Substance: ORLISTAT
     Indication: WEIGHT DECREASED
     Dosage: 3 YEARS AGO; WITH FATTY MEALS
     Route: 065

REACTIONS (4)
  - Steatorrhoea [Recovered/Resolved]
  - Suspected counterfeit product [Unknown]
  - Drug ineffective [Unknown]
  - Muscle spasms [Recovered/Resolved]
